FAERS Safety Report 21312333 (Version 1)
Quarter: 2022Q3

REPORT INFORMATION
  Report Type: Spontaneous
  Country: US (occurrence: US)
  Receive Date: 20220909
  Receipt Date: 20220909
  Transmission Date: 20221026
  Serious: Yes (Other)
  Sender: FDA-Public Use
  Company Number: US-SA-SAC20220905001548

PATIENT
  Age: 89 Year
  Sex: Female

DRUGS (2)
  1. DUPIXENT [Suspect]
     Active Substance: DUPILUMAB
     Dosage: 300 MG
     Route: 058
  2. PROLIA [Concomitant]
     Active Substance: DENOSUMAB
     Dosage: UNK

REACTIONS (1)
  - Skin cancer [Unknown]
